FAERS Safety Report 4382915-6 (Version None)
Quarter: 2004Q2

REPORT INFORMATION
  Report Type: 
  Country: None (occurrence: None)
  Receive Date: 20040617
  Receipt Date: 20040610
  Transmission Date: 20050107
  Serious: Yes (Hospitalization)
  Sender: FDA-Public Use
  Company Number: US-JNJFOC-20040602966

PATIENT
  Age: 6 Month
  Sex: Male

DRUGS (1)
  1. ACETAMINOPHEN [Suspect]
     Indication: PYREXIA
     Dates: start: 20040601

REACTIONS (3)
  - CARDIAC ARREST [None]
  - SOMNOLENCE [None]
  - VOMITING [None]
